FAERS Safety Report 15358465 (Version 1)
Quarter: 2018Q3

REPORT INFORMATION
  Report Type: Spontaneous
  Country: DE (occurrence: DE)
  Receive Date: 20180906
  Receipt Date: 20180906
  Transmission Date: 20181010
  Serious: Yes (Hospitalization)
  Sender: FDA-Public Use
  Company Number: DE-NAPPMUNDI-GBR-2018-0058964

PATIENT
  Age: 48 Year
  Sex: Female

DRUGS (9)
  1. GABAPENTIN. [Suspect]
     Active Substance: GABAPENTIN
     Indication: PRODUCT USED FOR UNKNOWN INDICATION
     Dosage: 300 MG, 1?0?0?0
     Route: 065
  2. XIPAMIDE [Concomitant]
     Active Substance: XIPAMIDE
     Dosage: 10 MG, 1?0?0?0
  3. SPIRONOLACTONE. [Concomitant]
     Active Substance: SPIRONOLACTONE
     Dosage: 100 MG, 1?0?0?0
  4. LORAZEPAM. [Suspect]
     Active Substance: LORAZEPAM
     Indication: PRODUCT USED FOR UNKNOWN INDICATION
     Dosage: 1 MG, 0?0?0?1
     Route: 065
  5. TORASEMID [Concomitant]
     Active Substance: TORSEMIDE
     Dosage: 20 MG, 1?0?0?0
  6. OXYCODONE HYDROCHLORIDE. [Suspect]
     Active Substance: OXYCODONE HYDROCHLORIDE
     Indication: PRODUCT USED FOR UNKNOWN INDICATION
     Dosage: 10 MG, 1?1?1?0
     Route: 065
  7. HEPARIN [Concomitant]
     Active Substance: HEPARIN SODIUM
     Dosage: NK MG, NK
     Route: 058
  8. METOPROLOL. [Concomitant]
     Active Substance: METOPROLOL
     Dosage: NK MG, 1?0?0?0
  9. LEVOTHYROXIN [Concomitant]
     Active Substance: LEVOTHYROXINE
     Dosage: 150 MG, 1?0?0?0

REACTIONS (3)
  - Drug prescribing error [Unknown]
  - Fall [Unknown]
  - Constipation [Unknown]
